FAERS Safety Report 5045626-X (Version None)
Quarter: 2006Q3

REPORT INFORMATION
  Report Type: 
  Country: None (occurrence: None)
  Receive Date: 20060707
  Receipt Date: 20060623
  Transmission Date: 20061208
  Serious: Yes (Hospitalization)
  Sender: FDA-Public Use
  Company Number: 2006SE03573

PATIENT
  Age: 15697 Day
  Sex: Male

DRUGS (3)
  1. SEROQUEL [Suspect]
     Indication: BIPOLAR I DISORDER
     Dosage: TITRATION TO 300 MG DAILY
     Route: 048
     Dates: start: 20060404, end: 20060406
  2. SEROQUEL [Suspect]
     Route: 048
     Dates: start: 20060407, end: 20060526
  3. SORTIS [Concomitant]
     Indication: HYPERLIPIDAEMIA
     Route: 048

REACTIONS (1)
  - MANIA [None]
